FAERS Safety Report 4430565-5 (Version None)
Quarter: 2004Q3

REPORT INFORMATION
  Report Type: 
  Country: None (occurrence: None)
  Receive Date: 20040818
  Receipt Date: 20040802
  Transmission Date: 20050211
  Serious: Yes (Disabling)
  Sender: FDA-Public Use
  Company Number: DSA_24776_2004

PATIENT
  Age: 77 Year
  Sex: Female

DRUGS (6)
  1. TEVETEN [Suspect]
     Indication: HYPERTENSION
     Dosage: 600 MG Q DAY PO
     Route: 048
     Dates: start: 20040602, end: 20040719
  2. ALBUTEROL SULFATE [Concomitant]
  3. BENDROFLUMETHIAZIDE [Concomitant]
  4. AMIODARONE [Concomitant]
  5. WARFARIN SODIUM [Concomitant]
  6. ATORVASTATIN [Concomitant]

REACTIONS (1)
  - BRONCHOSPASM [None]
